FAERS Safety Report 21674155 (Version 1)
Quarter: 2022Q4

REPORT INFORMATION
  Report Type: Report from Study
  Country: DE (occurrence: DE)
  Receive Date: 20221202
  Receipt Date: 20221202
  Transmission Date: 20230113
  Serious: Yes (Hospitalization)
  Sender: FDA-Public Use
  Company Number: DE-TEVA-2022-DE-2830657

PATIENT
  Age: 58 Year
  Sex: Female

DRUGS (1)
  1. COPAXONE [Suspect]
     Active Substance: GLATIRAMER ACETATE
     Indication: Multiple sclerosis
     Route: 065
     Dates: start: 20160601

REACTIONS (6)
  - Coronavirus infection [Recovered/Resolved]
  - Cough [Recovered/Resolved]
  - Rhinitis [Recovered/Resolved]
  - Pain [Recovered/Resolved]
  - Asthenia [Recovering/Resolving]
  - Post-acute COVID-19 syndrome [Recovering/Resolving]

NARRATIVE: CASE EVENT DATE: 20220901
